FAERS Safety Report 5732126-4 (Version None)
Quarter: 2008Q2

REPORT INFORMATION
  Report Type: 
  Country: None (occurrence: None)
  Receive Date: 20080508
  Receipt Date: 20080429
  Transmission Date: 20081010
  Serious: Yes (Hospitalization)
  Sender: FDA-Public Use
  Company Number: FR-PFIZER INC-2008037670

PATIENT
  Age: 34 Year
  Sex: Male

DRUGS (2)
  1. CELEBREX [Suspect]
     Indication: BACK PAIN
     Route: 048
  2. MAGNESIUM GLYCEROPHOSPHATE [Concomitant]

REACTIONS (3)
  - ANGIOEDEMA [None]
  - EYE PAIN [None]
  - ORAL PAIN [None]
